FAERS Safety Report 7994946-5 (Version None)
Quarter: 2011Q4

REPORT INFORMATION
  Report Type: 
  Country: None (occurrence: None)
  Receive Date: 20111220
  Receipt Date: 20111205
  Transmission Date: 20120403
  Serious: Yes (Hospitalization, Other)
  Sender: FDA-Public Use
  Company Number: US-ROCHE-787811

PATIENT
  Sex: Female
  Weight: 59.9 kg

DRUGS (14)
  1. CALCIUM [Concomitant]
  2. ASPIRIN [Concomitant]
     Dosage: EFFERVESCENT TABLET
  3. BENADRYL [Concomitant]
  4. FOLIC ACID [Concomitant]
  5. CARBOPLATIN [Concomitant]
     Dates: start: 20110202, end: 20110523
  6. CELEBREX [Concomitant]
  7. LIPITOR [Concomitant]
  8. DEXAMETHASONE [Concomitant]
  9. AVASTIN [Suspect]
     Indication: NON-SMALL CELL LUNG CANCER
     Route: 042
     Dates: start: 20110404, end: 20110606
  10. TAXOL [Concomitant]
  11. ALPRAZOLAM [Concomitant]
  12. AMLODIPINE [Concomitant]
  13. NORCO [Concomitant]
     Dosage: DOSE: 5MG- 325 MG
  14. SERTRALINE HYDROCHLORIDE [Concomitant]
     Dosage: ZOLOFT: 50 MG TABLET AND SERTRALINE: 100 MG TABLET

REACTIONS (6)
  - ABASIA [None]
  - DECREASED APPETITE [None]
  - GENERAL PHYSICAL HEALTH DETERIORATION [None]
  - MENTAL STATUS CHANGES [None]
  - DROOLING [None]
  - ASTHENIA [None]
